FAERS Safety Report 5384822-9 (Version None)
Quarter: 2007Q3

REPORT INFORMATION
  Report Type: 
  Country: None (occurrence: None)
  Receive Date: 20070711
  Receipt Date: 20070702
  Transmission Date: 20080115
  Serious: Yes (Disabling)
  Sender: FDA-Public Use
  Company Number: US-MERCK-0705USA01184

PATIENT
  Age: 84 Year
  Sex: Female
  Weight: 104 kg

DRUGS (9)
  1. JANUVIA [Suspect]
     Indication: TYPE 2 DIABETES MELLITUS
     Route: 048
     Dates: start: 20070201, end: 20070301
  2. JANUVIA [Suspect]
     Route: 048
     Dates: start: 20070306, end: 20070315
  3. JANUVIA [Suspect]
     Route: 048
     Dates: start: 20070324, end: 20070518
  4. DIOVAN [Concomitant]
     Indication: HYPERTENSION
     Route: 048
     Dates: start: 20051107
  5. LIPITOR [Concomitant]
     Route: 048
     Dates: start: 20040909
  6. VERAPAMIL EXTENDED-RELEASE [Concomitant]
     Indication: HYPERTENSION
     Route: 048
     Dates: start: 20070125
  7. VERAPAMIL EXTENDED-RELEASE [Concomitant]
     Indication: ATRIAL FIBRILLATION
     Route: 048
     Dates: start: 20070125
  8. GLUCOVANCE [Concomitant]
     Indication: TYPE 2 DIABETES MELLITUS
     Route: 048
     Dates: start: 20020101
  9. LASIX [Concomitant]
     Indication: OEDEMA PERIPHERAL
     Route: 065
     Dates: start: 20051003

REACTIONS (3)
  - AZOTAEMIA [None]
  - DYSPNOEA EXERTIONAL [None]
  - RASH PRURITIC [None]
